FAERS Safety Report 19504217 (Version 2)
Quarter: 2021Q3

REPORT INFORMATION
  Report Type: Report from Study
  Country: CO (occurrence: CO)
  Receive Date: 20210707
  Receipt Date: 20210715
  Transmission Date: 20211014
  Serious: Yes (Death, Other)
  Sender: FDA-Public Use
  Company Number: CO-TAKEDA-CO202029192

PATIENT
  Age: 14 Year
  Sex: Male
  Weight: 22 kg

DRUGS (7)
  1. IDURSULFASE [Suspect]
     Active Substance: IDURSULFASE
     Indication: MUCOPOLYSACCHARIDOSIS II
     Dosage: 6MG/3ML 0.5MG/KG14 MILLIGRAM
     Route: 042
  2. IDURSULFASE [Suspect]
     Active Substance: IDURSULFASE
     Dosage: 11 MG? 0.5 MG PER KILOGRAM OF WEIGHT
     Route: 042
     Dates: end: 20210326
  3. IDURSULFASE [Suspect]
     Active Substance: IDURSULFASE
     Dosage: 14 MILLIGRAM
     Route: 042
     Dates: start: 20160919
  4. IDURSULFASE [Suspect]
     Active Substance: IDURSULFASE
     Dosage: UNK, 2/WEEK
     Route: 065
  5. IDURSULFASE [Suspect]
     Active Substance: IDURSULFASE
     Dosage: 6 MG/3ML0.5 MILLIGRAM/KILOGRAM
     Route: 042
  6. LEVETIRACETAM. [Concomitant]
     Active Substance: LEVETIRACETAM
  7. IDURSULFASE [Suspect]
     Active Substance: IDURSULFASE
     Dosage: 11 MILLIGRAM, 6MG/3ML,0.5MG/KG
     Route: 042

REACTIONS (18)
  - Malaise [Recovering/Resolving]
  - Insomnia [Recovering/Resolving]
  - Abdominal pain [Recovered/Resolved]
  - Irritability [Recovering/Resolving]
  - Weight decreased [Recovering/Resolving]
  - Respiratory disorder [Unknown]
  - Gait disturbance [Recovering/Resolving]
  - Decreased appetite [Recovering/Resolving]
  - Diarrhoea [Recovering/Resolving]
  - Discomfort [Recovering/Resolving]
  - Cough [Recovering/Resolving]
  - Product dose omission issue [Unknown]
  - Seizure [Recovering/Resolving]
  - Nasal congestion [Recovering/Resolving]
  - Asthenia [Recovering/Resolving]
  - Death [Fatal]
  - Discouragement [Unknown]
  - Inappropriate schedule of product administration [Unknown]

NARRATIVE: CASE EVENT DATE: 20200903
